FAERS Safety Report 6728260-2 (Version None)
Quarter: 2010Q2

REPORT INFORMATION
  Report Type: 
  Country: None (occurrence: None)
  Receive Date: 20100517
  Receipt Date: 20100506
  Transmission Date: 20101027
  Serious: Yes (Hospitalization, Other)
  Sender: FDA-Public Use
  Company Number: CHPA2010US07871

PATIENT
  Age: 67 Year
  Sex: Female
  Weight: 77.098 kg

DRUGS (3)
  1. PREVACID 24 HR [Suspect]
     Indication: GASTROOESOPHAGEAL REFLUX DISEASE
     Dosage: 30 MG, QD
     Route: 048
  2. LIPITOR [Concomitant]
  3. DIOVAN HCT [Concomitant]
     Indication: HYPERTENSION

REACTIONS (13)
  - BLOOD PRESSURE DECREASED [None]
  - COLITIS COLLAGENOUS [None]
  - COLONOSCOPY [None]
  - DEHYDRATION [None]
  - DIARRHOEA [None]
  - ENDOSCOPY [None]
  - HEART RATE IRREGULAR [None]
  - INTENTIONAL DRUG MISUSE [None]
  - IRRITABLE BOWEL SYNDROME [None]
  - OFF LABEL USE [None]
  - OVERDOSE [None]
  - SIGMOIDOSCOPY [None]
  - WEIGHT DECREASED [None]
